FAERS Safety Report 5482797-5 (Version None)
Quarter: 2007Q4

REPORT INFORMATION
  Report Type: 
  Country: None (occurrence: None)
  Receive Date: 20071011
  Receipt Date: 20070928
  Transmission Date: 20080405
  Serious: Yes (Hospitalization, Other)
  Sender: FDA-Public Use
  Company Number: US-PFIZER INC-2007044354

PATIENT
  Sex: Male
  Weight: 117.9 kg

DRUGS (1)
  1. CELEBREX [Suspect]
     Indication: PAIN
     Dates: start: 20050101, end: 20050101

REACTIONS (2)
  - CARDIOVASCULAR DISORDER [None]
  - CEREBROVASCULAR ACCIDENT [None]
